FAERS Safety Report 16045048 (Version 3)
Quarter: 2019Q2

REPORT INFORMATION
  Report Type: Spontaneous
  Country: JP (occurrence: JP)
  Receive Date: 20190307
  Receipt Date: 20190619
  Transmission Date: 20190711
  Serious: Yes (Hospitalization, Other)
  Sender: FDA-Public Use
  Company Number: JP-ROCHE-2277816

PATIENT
  Age: 69 Year
  Sex: Male
  Weight: 77 kg

DRUGS (11)
  1. REVLIMID [Suspect]
     Active Substance: LENALIDOMIDE
     Indication: PRODUCT USED FOR UNKNOWN INDICATION
     Route: 048
     Dates: start: 20180301, end: 20181231
  2. TAMIFLU [Suspect]
     Active Substance: OSELTAMIVIR PHOSPHATE
     Indication: INFLUENZA
     Route: 048
     Dates: start: 20190108, end: 20190109
  3. VICCLOX [Concomitant]
     Active Substance: ACYCLOVIR SODIUM
     Route: 065
     Dates: start: 201704, end: 20181230
  4. METHYCOBAL [Concomitant]
     Active Substance: METHYLCOBALAMIN
     Route: 065
     Dates: start: 2017, end: 20181230
  5. TAMIFLU [Suspect]
     Active Substance: OSELTAMIVIR PHOSPHATE
     Route: 048
     Dates: start: 20181225, end: 20181230
  6. LENADEX [Concomitant]
     Active Substance: DEXAMETHASONE ACETATE
     Route: 048
     Dates: start: 20170428, end: 201901
  7. ELIQUIS [Concomitant]
     Active Substance: APIXABAN
     Route: 065
     Dates: start: 201704, end: 20181230
  8. SAMTIREL [Concomitant]
     Active Substance: ATOVAQUONE
     Route: 065
     Dates: start: 201704, end: 20181230
  9. PARIET [Concomitant]
     Active Substance: RABEPRAZOLE SODIUM
     Route: 065
     Dates: end: 20181230
  10. VALSARTAN. [Concomitant]
     Active Substance: VALSARTAN
     Route: 065
     Dates: end: 20181230
  11. URIEF [Concomitant]
     Active Substance: SILODOSIN
     Route: 065

REACTIONS (8)
  - Malaise [Unknown]
  - Blood creatinine increased [Recovered/Resolved]
  - Platelet count decreased [Recovering/Resolving]
  - Aplastic anaemia [Not Recovered/Not Resolved]
  - Seizure [Unknown]
  - Bone marrow failure [Unknown]
  - Pneumonia [Unknown]
  - Acute kidney injury [Recovering/Resolving]

NARRATIVE: CASE EVENT DATE: 20190101
